FAERS Safety Report 18103809 (Version 1)
Quarter: 2020Q3

REPORT INFORMATION
  Report Type: Spontaneous
  Country: US (occurrence: US)
  Receive Date: 20200731
  Receipt Date: 20200731
  Transmission Date: 20201103
  Serious: Yes (Hospitalization)
  Sender: FDA-Public Use
  Company Number: None

PATIENT
  Age: 80 Year
  Sex: Female

DRUGS (9)
  1. COLCHICINE. [Concomitant]
     Active Substance: COLCHICINE
  2. PREDNISONE. [Concomitant]
     Active Substance: PREDNISONE
  3. LOSARTAN. [Concomitant]
     Active Substance: LOSARTAN
  4. ELIQUIS [Concomitant]
     Active Substance: APIXABAN
  5. PANTOPRAZOLE [Concomitant]
     Active Substance: PANTOPRAZOLE
  6. DOFETILIDE 250MCG [Suspect]
     Active Substance: DOFETILIDE
     Indication: RESPIRATORY DISORDER
     Route: 048
     Dates: start: 20180120
  7. AMLODIPINE [Concomitant]
     Active Substance: AMLODIPINE BESYLATE
  8. PRAVASTATIN. [Concomitant]
     Active Substance: PRAVASTATIN
  9. METOPROLOL. [Concomitant]
     Active Substance: METOPROLOL

REACTIONS (1)
  - Implantable defibrillator insertion [None]

NARRATIVE: CASE EVENT DATE: 20200610
